FAERS Safety Report 18815425 (Version 1)
Quarter: 2021Q1

REPORT INFORMATION
  Report Type: Spontaneous
  Country: US (occurrence: US)
  Receive Date: 20210129
  Receipt Date: 20210129
  Transmission Date: 20210419
  Serious: Yes (Other)
  Sender: FDA-Public Use
  Company Number: None

PATIENT
  Age: 64 Year
  Sex: Male
  Weight: 133.7 kg

DRUGS (2)
  1. HUMAN BLOOD CELLS. [Suspect]
     Active Substance: HUMAN BLOOD CELLS
  2. D5W + SODIUM BICARBONATE IV SOLUTION [Concomitant]
     Dates: start: 20201220, end: 20201221

REACTIONS (1)
  - Transfusion [None]

NARRATIVE: CASE EVENT DATE: 20201220
